FAERS Safety Report 7426326-5 (Version None)
Quarter: 2011Q2

REPORT INFORMATION
  Report Type: 
  Country: None (occurrence: None)
  Receive Date: 20110420
  Receipt Date: 20110414
  Transmission Date: 20111010
  Serious: Yes (Disabling)
  Sender: FDA-Public Use
  Company Number: B0713026A

PATIENT
  Sex: Female

DRUGS (3)
  1. DEROXAT [Suspect]
     Dosage: 1UNIT PER DAY
     Route: 048
     Dates: end: 20110309
  2. SERESTA [Suspect]
     Route: 048
     Dates: end: 20110309
  3. RISPERDAL [Suspect]
     Indication: DELIRIUM
     Dosage: .5MG TWICE PER DAY
     Route: 048
     Dates: start: 20110304, end: 20110305

REACTIONS (7)
  - DELIRIUM [None]
  - MUSCULOSKELETAL STIFFNESS [None]
  - FALL [None]
  - GAIT DISTURBANCE [None]
  - SOMNOLENCE [None]
  - DISORIENTATION [None]
  - ABNORMAL BEHAVIOUR [None]
